FAERS Safety Report 19983367 (Version 1)
Quarter: 2021Q4

REPORT INFORMATION
  Report Type: Spontaneous
  Country: US (occurrence: US)
  Receive Date: 20211022
  Receipt Date: 20211022
  Transmission Date: 20220303
  Serious: Yes (Other)
  Sender: FDA-Public Use
  Company Number: None

PATIENT
  Age: 26 Year
  Sex: Male
  Weight: 81 kg

DRUGS (1)
  1. BENZEDREX [Suspect]
     Active Substance: PROPYLHEXEDRINE
     Indication: Substance use
     Dates: start: 20210318, end: 20211001

REACTIONS (4)
  - Dependence [None]
  - Drug abuse [None]
  - Neurotoxicity [None]
  - Cardiotoxicity [None]

NARRATIVE: CASE EVENT DATE: 20211001
